FAERS Safety Report 8114158-4 (Version None)
Quarter: 2012Q1

REPORT INFORMATION
  Report Type: 
  Country: None (occurrence: None)
  Receive Date: 20120205
  Receipt Date: 20120127
  Transmission Date: 20120608
  Serious: Yes (Disabling, Other)
  Sender: FDA-Public Use
  Company Number: PHHY2012GB007163

PATIENT
  Age: 85 Year
  Sex: Female
  Weight: 57 kg

DRUGS (15)
  1. FUROSEMIDE [Concomitant]
     Dosage: 40 MG, UNK
  2. LOSARTAN POTASSIUM [Concomitant]
     Dosage: 50 MG, UNK
  3. WARFARIN SODIUM [Concomitant]
     Dosage: 3 MG, UNK
  4. DIGOXIN [Concomitant]
     Dosage: 125 UG, UNK
  5. NICORANDIL [Concomitant]
     Dosage: 20 MG, UNK
  6. ZAPAIN [Concomitant]
  7. METFORMIN HCL [Suspect]
     Indication: TYPE 2 DIABETES MELLITUS
     Dosage: 2 DF, UNK
     Route: 048
     Dates: start: 20111024, end: 20111205
  8. BISOPROLOL [Concomitant]
     Dosage: 5 MG, UNK
  9. IBANDRONATE SODIUM [Concomitant]
     Dosage: 150 MG, UNK
  10. LACTULOSE [Concomitant]
     Dosage: 10 ML, UNK
  11. LANSOPRAZOLE [Concomitant]
     Dosage: 30 MG, UNK
  12. ISMN [Concomitant]
     Dosage: 20 MG, UNK
  13. LEVOTHYROXINE SODIUM [Concomitant]
     Dosage: 50 UG, UNK
  14. CLOTRIMAZOLE [Concomitant]
     Dosage: 1 DF, UNK
  15. SPIRONOLACTONE [Concomitant]
     Dosage: 12.5 MG, UNK

REACTIONS (1)
  - CUTANEOUS VASCULITIS [None]
